FAERS Safety Report 6312271-5 (Version None)
Quarter: 2009Q3

REPORT INFORMATION
  Report Type: 
  Country: None (occurrence: None)
  Receive Date: 20090813
  Receipt Date: 20090728
  Transmission Date: 20100115
  Serious: Yes (Hospitalization)
  Sender: FDA-Public Use
  Company Number: ACO_00581_2009

PATIENT
  Sex: Female

DRUGS (5)
  1. TIZANIDINE HCL [Suspect]
     Indication: PYREXIA
     Dosage: (2 MG TID ORAL)
     Route: 048
     Dates: start: 20090615, end: 20090618
  2. TETRALYSAL (LYMECYCLINE) [Suspect]
     Indication: DRUG USE FOR UNKNOWN INDICATION
     Dosage: (300 MG ORAL)
     Route: 048
     Dates: start: 20090605, end: 20090617
  3. DIFFERIN [Suspect]
     Indication: DRUG USE FOR UNKNOWN INDICATION
     Dosage: (DF TOPICAL)
     Route: 061
     Dates: start: 20090605, end: 20090617
  4. ACETAMINOPHEN [Suspect]
     Indication: DRUG USE FOR UNKNOWN INDICATION
     Dosage: (500 MG BID ORAL)
     Route: 048
     Dates: start: 20090613, end: 20090618
  5. ASPIRIN [Suspect]
     Indication: DRUG USE FOR UNKNOWN INDICATION
     Dosage: (500 MG BID ORAL)
     Route: 048
     Dates: start: 20090613, end: 20090618

REACTIONS (8)
  - ASPARTATE AMINOTRANSFERASE INCREASED [None]
  - BLOOD LACTATE DEHYDROGENASE INCREASED [None]
  - C-REACTIVE PROTEIN INCREASED [None]
  - COUGH [None]
  - HEPATIC ENZYME INCREASED [None]
  - LYMPHOCYTE COUNT DECREASED [None]
  - NEUTROPHIL COUNT INCREASED [None]
  - RASH [None]
